FAERS Safety Report 20127841 (Version 1)
Quarter: 2021Q4

REPORT INFORMATION
  Report Type: Spontaneous
  Country: CO (occurrence: CO)
  Receive Date: 20211129
  Receipt Date: 20211129
  Transmission Date: 20220303
  Serious: Yes (Other)
  Sender: FDA-Public Use
  Company Number: CO-PFIZER INC-202101639090

PATIENT
  Age: 68 Year
  Sex: Female

DRUGS (1)
  1. XELJANZ [Suspect]
     Active Substance: TOFACITINIB CITRATE
     Indication: Rheumatoid arthritis
     Dosage: 5 MG, UNSPECIFIED FREQUENCY
     Route: 048

REACTIONS (4)
  - Gait inability [Unknown]
  - Osteoarthritis [Unknown]
  - Swelling [Unknown]
  - Product dose omission issue [Unknown]
